FAERS Safety Report 19014129 (Version 2)
Quarter: 2021Q1

REPORT INFORMATION
  Report Type: Spontaneous
  Country: US (occurrence: US)
  Receive Date: 20210316
  Receipt Date: 20210318
  Transmission Date: 20210420
  Serious: Yes (Other)
  Sender: FDA-Public Use
  Company Number: US-GLAXOSMITHKLINE-US2021GSK032533

PATIENT
  Sex: Male

DRUGS (12)
  1. ZANTAC [Suspect]
     Active Substance: RANITIDINE HYDROCHLORIDE
     Dosage: 100 MG, PERIODS OF NON?USE (AT LEAST 3 MONTHS WITHOUT USE)
     Route: 065
     Dates: start: 199703, end: 201912
  2. RANITIDINE. [Suspect]
     Active Substance: RANITIDINE
     Indication: GASTROOESOPHAGEAL REFLUX DISEASE
     Dosage: 50 MG, PERIODS OF NON?USE (AT LEAST 3 MONTHS WITHOUT USE)
     Route: 065
     Dates: start: 199703, end: 201912
  3. ZANTAC [Suspect]
     Active Substance: RANITIDINE HYDROCHLORIDE
     Indication: DYSPEPSIA
     Dosage: 75 MG, PERIODS OF NON?USE (AT LEAST 3 MONTHS WITHOUT USE)
     Route: 065
     Dates: start: 199703, end: 201912
  4. RANITIDINE. [Suspect]
     Active Substance: RANITIDINE
     Indication: GASTROOESOPHAGEAL REFLUX DISEASE
     Dosage: 50 MG, PERIODS OF NON?USE (AT LEAST 3 MONTHS WITHOUT USE)
     Route: 065
     Dates: start: 199703, end: 201912
  5. ZANTAC [Suspect]
     Active Substance: RANITIDINE HYDROCHLORIDE
     Dosage: 100 MG, PERIODS OF NON?USE (AT LEAST 3 MONTHS WITHOUT USE)
     Route: 065
     Dates: start: 199703, end: 201912
  6. ZANTAC [Suspect]
     Active Substance: RANITIDINE HYDROCHLORIDE
     Indication: DYSPEPSIA
     Dosage: 75 MG, PERIODS OF NON?USE (AT LEAST 3 MONTHS WITHOUT USE)
     Route: 065
     Dates: start: 199703, end: 201912
  7. RANITIDINE. [Suspect]
     Active Substance: RANITIDINE
     Indication: DYSPEPSIA
     Dosage: 75 MG, PERIODS OF NON?USE (AT LEAST 3 MONTHS WITHOUT USE)
     Route: 065
     Dates: start: 199703, end: 201912
  8. RANITIDINE. [Suspect]
     Active Substance: RANITIDINE
     Indication: DYSPEPSIA
     Dosage: 75 MG, PERIODS OF NON?USE (AT LEAST 3 MONTHS WITHOUT USE)
     Route: 065
     Dates: start: 199703, end: 201912
  9. RANITIDINE. [Suspect]
     Active Substance: RANITIDINE
     Dosage: 100 MG, PERIODS OF NON?USE (AT LEAST 3 MONTHS WITHOUT USE)
     Route: 065
     Dates: start: 199703, end: 201912
  10. RANITIDINE. [Suspect]
     Active Substance: RANITIDINE
     Dosage: 100 MG, PERIODS OF NON?USE (AT LEAST 3 MONTHS WITHOUT USE)
     Route: 065
     Dates: start: 199703, end: 201912
  11. ZANTAC [Suspect]
     Active Substance: RANITIDINE HYDROCHLORIDE
     Indication: GASTROOESOPHAGEAL REFLUX DISEASE
     Dosage: 50 MG, PERIODS OF NON?USE (AT LEAST 3 MONTHS WITHOUT USE)
     Route: 065
     Dates: start: 199703, end: 201912
  12. ZANTAC [Suspect]
     Active Substance: RANITIDINE HYDROCHLORIDE
     Indication: GASTROOESOPHAGEAL REFLUX DISEASE
     Dosage: 50 MG, PERIODS OF NON?USE (AT LEAST 3 MONTHS WITHOUT USE)
     Route: 065
     Dates: start: 199703, end: 201912

REACTIONS (3)
  - Colorectal cancer [Unknown]
  - Prostate cancer [Unknown]
  - Skin cancer [Unknown]
